FAERS Safety Report 9207698 (Version 1)
Quarter: 2013Q1

REPORT INFORMATION
  Report Type: Spontaneous
  Country: US (occurrence: None)
  Receive Date: 20120809
  Receipt Date: 20120809
  Transmission Date: 20140127
  Serious: Yes (Other)
  Sender: FDA-Public Use
  Company Number: 2011US007019

PATIENT
  Age: 52 Year
  Sex: Female
  Weight: 82 kg

DRUGS (4)
  1. VESICARE [Suspect]
     Indication: HYPERTONIC BLADDER
     Dosage: TOTAL DOSE
     Route: 048
     Dates: start: 201104, end: 201104
  2. TOPROL (METOPROLOL SUCCINATE ) [Concomitant]
  3. MACRODANTIN [Concomitant]
  4. BENICAR (OLMESARTAN MEDOXOMIL) [Concomitant]

REACTIONS (1)
  - Urinary retention [None]
